FAERS Safety Report 8424993-0 (Version None)
Quarter: 2012Q2

REPORT INFORMATION
  Report Type: 
  Country: None (occurrence: None)
  Receive Date: 20120605
  Receipt Date: 20120605
  Transmission Date: 20120825
  Serious: Yes (Hospitalization)
  Sender: FDA-Public Use
  Company Number: None

PATIENT
  Sex: Male
  Weight: 90 kg

DRUGS (4)
  1. EVEROLIMUS 2.5 [Suspect]
     Indication: OESOPHAGEAL ADENOCARCINOMA
     Dosage: 70 MG/CYCLE, O.D., PO
     Route: 048
     Dates: start: 20120424, end: 20120522
  2. EVEROLIMUS 2.5 [Suspect]
     Indication: OESOPHAGEAL ADENOCARCINOMA
     Dosage: 70 MG/CYCLE, O.D., PO
     Route: 048
     Dates: start: 20120327, end: 20120424
  3. OXALIPLATIN [Concomitant]
  4. LEUCOVORIN CALCIUM [Concomitant]

REACTIONS (3)
  - STOMATITIS [None]
  - PYREXIA [None]
  - REFUSAL OF TREATMENT BY PATIENT [None]
